FAERS Safety Report 24460488 (Version 1)
Quarter: 2024Q4

REPORT INFORMATION
  Report Type: Report from Study
  Country: DE (occurrence: DE)
  Receive Date: 20241018
  Receipt Date: 20241018
  Transmission Date: 20250115
  Serious: No
  Sender: ROCHE
  Company Number: DE-ROCHE-3571962

PATIENT
  Sex: Female

DRUGS (5)
  1. RITUXIMAB [Suspect]
     Active Substance: RITUXIMAB
     Indication: Secondary progressive multiple sclerosis
     Dosage: SHE RECEIVED LAST DOSE OF RITUXIMAB IN FEB/2024.
     Route: 041
     Dates: start: 202304
  2. PREGABALIN [Concomitant]
     Active Substance: PREGABALIN
     Dosage: 1-1-1
  3. BENSERAZIDE HYDROCHLORIDE\LEVODOPA [Concomitant]
     Active Substance: BENSERAZIDE HYDROCHLORIDE\LEVODOPA
     Dosage: 0-1-1
  4. BENRALIZUMAB [Concomitant]
     Active Substance: BENRALIZUMAB
     Route: 058
  5. NABIXIMOLS [Concomitant]
     Active Substance: NABIXIMOLS

REACTIONS (2)
  - Off label use [Unknown]
  - Fatigue [Not Recovered/Not Resolved]

NARRATIVE: CASE EVENT DATE: 20230401
